FAERS Safety Report 11918017 (Version 3)
Quarter: 2016Q1

REPORT INFORMATION
  Report Type: Report from Study
  Country: US (occurrence: US)
  Receive Date: 20160114
  Receipt Date: 20160127
  Transmission Date: 20160526
  Serious: Yes (Hospitalization, Other)
  Sender: FDA-Public Use
  Company Number: US-ABBVIE-16P-163-1534233-00

PATIENT
  Age: 88 Year
  Sex: Male

DRUGS (1)
  1. DUOPA [Suspect]
     Active Substance: CARBIDOPA\LEVODOPA
     Indication: PARKINSON^S DISEASE
     Route: 050
     Dates: start: 20151013, end: 201512

REACTIONS (7)
  - Fall [Unknown]
  - Road traffic accident [Unknown]
  - Pain [Unknown]
  - Mobility decreased [Unknown]
  - Device issue [Unknown]
  - Thoracic vertebral fracture [Not Recovered/Not Resolved]
  - Device dislocation [Unknown]

NARRATIVE: CASE EVENT DATE: 201601
